FAERS Safety Report 19774221 (Version 1)
Quarter: 2021Q3

REPORT INFORMATION
  Report Type: Spontaneous
  Country: US (occurrence: US)
  Receive Date: 20210901
  Receipt Date: 20210901
  Transmission Date: 20211014
  Serious: Yes (Other)
  Sender: FDA-Public Use
  Company Number: US-BAUSCH-BL-2021-028461

PATIENT
  Sex: Male

DRUGS (3)
  1. MESTINON [Suspect]
     Active Substance: PYRIDOSTIGMINE BROMIDE
     Dosage: STARTED ON 3 MORE PILLS
     Route: 065
  2. SOLIRIS [Suspect]
     Active Substance: ECULIZUMAB
     Indication: MYASTHENIA GRAVIS
     Dosage: 10 MG/ML; 1200 MG , EVERY TWO WEEKS
     Route: 042
     Dates: start: 201906
  3. MESTINON [Suspect]
     Active Substance: PYRIDOSTIGMINE BROMIDE
     Indication: PRODUCT USED FOR UNKNOWN INDICATION
     Route: 065

REACTIONS (7)
  - Loss of consciousness [Unknown]
  - Blood pressure decreased [Unknown]
  - Diarrhoea [Unknown]
  - Fatigue [Unknown]
  - Neoplasm recurrence [Unknown]
  - Dysphagia [Unknown]
  - Asthenia [Unknown]

NARRATIVE: CASE EVENT DATE: 2021
